FAERS Safety Report 13419036 (Version 4)
Quarter: 2023Q4

REPORT INFORMATION
  Report Type: Spontaneous
  Country: US (occurrence: US)
  Receive Date: 20170407
  Receipt Date: 20231218
  Transmission Date: 20240109
  Serious: No
  Sender: FDA-Public Use
  Company Number: US-JNJFOC-20170319730

PATIENT
  Sex: Male

DRUGS (20)
  1. RISPERDAL [Suspect]
     Active Substance: RISPERIDONE
     Indication: Attention deficit hyperactivity disorder
     Route: 048
     Dates: start: 20050923, end: 20080814
  2. RISPERDAL [Suspect]
     Active Substance: RISPERIDONE
     Indication: Intermittent explosive disorder
     Route: 048
     Dates: start: 20051117, end: 20071022
  3. RISPERDAL [Suspect]
     Active Substance: RISPERIDONE
     Indication: Behaviour disorder
     Dosage: 2 MG AT HOUR OF SLEEP, 0.5 MG AFTERNOON
     Route: 048
     Dates: start: 20070425, end: 20080703
  4. RISPERDAL [Suspect]
     Active Substance: RISPERIDONE
     Indication: Mental disorder
     Route: 048
     Dates: start: 20070509
  5. RISPERDAL [Suspect]
     Active Substance: RISPERIDONE
     Indication: Bipolar disorder
     Dosage: 1 MG IN THE MORNING, 2 MG AT HOUR OF SLEEP
     Route: 048
     Dates: start: 20080531
  6. RISPERDAL [Suspect]
     Active Substance: RISPERIDONE
     Route: 048
     Dates: end: 20080731
  7. RISPERDAL [Suspect]
     Active Substance: RISPERIDONE
     Route: 048
     Dates: start: 20080812
  8. RISPERDAL [Suspect]
     Active Substance: RISPERIDONE
     Route: 048
     Dates: start: 20080819, end: 20081231
  9. RISPERDAL [Suspect]
     Active Substance: RISPERIDONE
     Route: 048
     Dates: start: 2009
  10. RISPERIDONE [Suspect]
     Active Substance: RISPERIDONE
     Indication: Bipolar disorder
     Route: 048
     Dates: start: 20090101, end: 20090303
  11. RISPERIDONE [Suspect]
     Active Substance: RISPERIDONE
     Indication: Intermittent explosive disorder
     Route: 048
     Dates: start: 2008, end: 2013
  12. RISPERIDONE [Suspect]
     Active Substance: RISPERIDONE
     Indication: Behaviour disorder
     Route: 048
     Dates: start: 2019
  13. RISPERIDONE [Suspect]
     Active Substance: RISPERIDONE
     Indication: Attention deficit hyperactivity disorder
  14. RISPERIDONE [Suspect]
     Active Substance: RISPERIDONE
     Indication: Mental disorder
  15. INVEGA [Suspect]
     Active Substance: PALIPERIDONE
     Indication: Bipolar I disorder
     Dosage: 3 MG IN THE MORNING
     Route: 048
     Dates: start: 20080812, end: 20080814
  16. INVEGA [Suspect]
     Active Substance: PALIPERIDONE
     Indication: Intermittent explosive disorder
  17. INVEGA [Suspect]
     Active Substance: PALIPERIDONE
     Indication: Behaviour disorder
  18. INVEGA [Suspect]
     Active Substance: PALIPERIDONE
     Indication: Attention deficit hyperactivity disorder
  19. SEROQUEL [Suspect]
     Active Substance: QUETIAPINE FUMARATE
     Indication: Insomnia
     Route: 065
     Dates: start: 2011, end: 2012
  20. ZYPREXA [Suspect]
     Active Substance: OLANZAPINE
     Indication: Depression
     Route: 065
     Dates: start: 2009

REACTIONS (3)
  - Gynaecomastia [Unknown]
  - Emotional distress [Unknown]
  - Therapy cessation [Unknown]
